FAERS Safety Report 8011266-3 (Version None)
Quarter: 2011Q4

REPORT INFORMATION
  Report Type: 
  Country: None (occurrence: None)
  Receive Date: 20111227
  Receipt Date: 20111227
  Transmission Date: 20120403
  Serious: Yes (Life-Threatening, Other)
  Sender: FDA-Public Use
  Company Number: None

PATIENT
  Age: 48 Year
  Sex: Male
  Weight: 108.86 kg

DRUGS (2)
  1. NOVOLOG [Concomitant]
  2. CIALIS [Suspect]
     Dosage: 20MG
     Route: 048
     Dates: start: 20111218, end: 20111218

REACTIONS (8)
  - CONCUSSION [None]
  - HEAD INJURY [None]
  - SYNCOPE [None]
  - CONVULSION [None]
  - MULTIPLE INJURIES [None]
  - FALL [None]
  - LOSS OF CONSCIOUSNESS [None]
  - DIZZINESS [None]
